FAERS Safety Report 7994902-7 (Version None)
Quarter: 2011Q4

REPORT INFORMATION
  Report Type: 
  Country: None (occurrence: None)
  Receive Date: 20111220
  Receipt Date: 20111215
  Transmission Date: 20120403
  Serious: Yes (Death, Hospitalization, Other)
  Sender: FDA-Public Use
  Company Number: GB-ROCHE-GNE322972

PATIENT
  Sex: Male

DRUGS (10)
  1. CLOPIDOGREL [Concomitant]
  2. ISMN [Concomitant]
  3. ASPIRIN [Concomitant]
  4. FUROSEMIDE [Concomitant]
  5. NICORANDIL [Concomitant]
  6. ATORVASTATIN [Concomitant]
  7. ATENOLOL [Concomitant]
  8. LUCENTIS [Suspect]
     Indication: PRODUCT USED FOR UNKNOWN INDICATION
     Route: 050
  9. LOSARTAN POTASSIUM [Concomitant]
  10. CALCICHEW D3 [Concomitant]

REACTIONS (3)
  - MYOCARDIAL INFARCTION [None]
  - CARDIAC FAILURE [None]
  - ANGINA PECTORIS [None]
